FAERS Safety Report 25598203 (Version 1)
Quarter: 2025Q3

REPORT INFORMATION
  Report Type: Spontaneous
  Country: US (occurrence: None)
  Receive Date: 20250723
  Receipt Date: 20250723
  Transmission Date: 20251020
  Serious: No
  Sender: INCYTE
  Company Number: US-INCYTE CORPORATION-2025IN007741

PATIENT
  Age: 59 Year

DRUGS (2)
  1. JAKAFI [Suspect]
     Active Substance: RUXOLITINIB
     Indication: Myelofibrosis
  2. OJJAARA [Suspect]
     Active Substance: MOMELOTINIB DIHYDROCHLORIDE MONOHYDRATE
     Route: 065

REACTIONS (5)
  - Pruritus [Unknown]
  - Anxiety [Unknown]
  - Splenomegaly [Unknown]
  - Contusion [Unknown]
  - Headache [Unknown]
